FAERS Safety Report 5743398-4 (Version None)
Quarter: 2008Q2

REPORT INFORMATION
  Report Type: 
  Country: None (occurrence: None)
  Receive Date: 20080516
  Receipt Date: 20080516
  Transmission Date: 20081010
  Serious: No
  Sender: FDA-Public Use
  Company Number: None

PATIENT

DRUGS (1)
  1. CREST PRO HEALTH [Suspect]

REACTIONS (5)
  - HYPOAESTHESIA ORAL [None]
  - MASTICATION DISORDER [None]
  - TONGUE BITING [None]
  - TONGUE DISORDER [None]
  - TOOTH FRACTURE [None]
